FAERS Safety Report 5494158-3 (Version None)
Quarter: 2007Q4

REPORT INFORMATION
  Report Type: 
  Country: None (occurrence: None)
  Receive Date: 20071024
  Receipt Date: 20071016
  Transmission Date: 20080405
  Serious: Yes (Hospitalization)
  Sender: FDA-Public Use
  Company Number: PHBS2007CN17332

PATIENT
  Age: 87 Year
  Sex: Male
  Weight: 50 kg

DRUGS (3)
  1. LOTENSIN [Suspect]
     Indication: HYPERTENSION
     Dosage: 10 MG, QD
     Route: 048
     Dates: end: 20071012
  2. ASMETON [Concomitant]
  3. AMIODARONE [Concomitant]

REACTIONS (5)
  - CYANOSIS [None]
  - ERYTHEMA [None]
  - PERIPHERAL COLDNESS [None]
  - RASH PAPULAR [None]
  - RAYNAUD'S PHENOMENON [None]
